FAERS Safety Report 16210001 (Version 1)
Quarter: 2019Q2

REPORT INFORMATION
  Report Type: Spontaneous
  Country: CN (occurrence: CN)
  Receive Date: 20190417
  Receipt Date: 20190417
  Transmission Date: 20190711
  Serious: Yes (Disabling)
  Sender: FDA-Public Use
  Company Number: PHHY2019CN086100

PATIENT
  Age: 69 Year
  Sex: Male
  Weight: 75 kg

DRUGS (6)
  1. ATORVASTATIN CALCIUM. [Suspect]
     Active Substance: ATORVASTATIN CALCIUM
     Indication: LIPIDS ABNORMAL
     Dosage: 20 MG, QD
     Route: 048
     Dates: start: 20190211, end: 20190216
  2. LAI LI XIN [Suspect]
     Active Substance: LEVOFLOXACIN
     Indication: RESPIRATORY TRACT INFECTION
     Dosage: 200 ML, QD
     Route: 041
     Dates: start: 20190211, end: 20190216
  3. SHIOMARIN [Suspect]
     Active Substance: LATAMOXEF DISODIUM
     Indication: RESPIRATORY TRACT INFECTION
     Dosage: 0.5 G, TID
     Route: 041
     Dates: start: 20190212, end: 20190216
  4. RUN TAN [Suspect]
     Active Substance: VINPOCETINE
     Indication: CEREBRAL INFARCTION
     Dosage: 20 MG, QD
     Route: 041
     Dates: start: 20190211, end: 20190216
  5. TALCOM [Suspect]
     Active Substance: CLOPIDOGREL BISULFATE
     Indication: PLATELET AGGREGATION ABNORMAL
     Dosage: 50 MG, QD
     Route: 048
     Dates: start: 20190211, end: 20190216
  6. THIOCTIC ACID [Suspect]
     Active Substance: THIOCTIC ACID
     Indication: DIABETIC NEUROPATHY
     Dosage: 20 ML, QD
     Route: 041
     Dates: start: 20190211, end: 20190216

REACTIONS (2)
  - Renal impairment [Unknown]
  - Liver injury [Unknown]

NARRATIVE: CASE EVENT DATE: 20190215
